FAERS Safety Report 6542007-4 (Version None)
Quarter: 2010Q1

REPORT INFORMATION
  Report Type: 
  Country: None (occurrence: None)
  Receive Date: 20100119
  Receipt Date: 20070531
  Transmission Date: 20100710
  Serious: Yes (Hospitalization)
  Sender: FDA-Public Use
  Company Number: FR-PFIZER INC-2009265426

PATIENT
  Age: 48 Year
  Sex: Female

DRUGS (4)
  1. EPIRUBICIN HYDROCHLORIDE [Suspect]
     Indication: GASTRIC CANCER
  2. CISPLATIN [Suspect]
     Indication: GASTRIC CANCER
  3. CAPECITABINE [Suspect]
     Indication: GASTRIC CANCER
  4. IXPRIM [Concomitant]
     Dosage: 4 TABLETS/DAY
     Route: 048
     Dates: start: 20060901

REACTIONS (2)
  - BACK PAIN [None]
  - VOMITING [None]
